FAERS Safety Report 9264489 (Version 1)
Quarter: 2013Q2

REPORT INFORMATION
  Report Type: Spontaneous
  Country: DE (occurrence: DE)
  Receive Date: 20130501
  Receipt Date: 20130501
  Transmission Date: 20140414
  Serious: Yes (Hospitalization)
  Sender: FDA-Public Use
  Company Number: CHNY2013DE001042

PATIENT
  Age: 57 Year
  Sex: Male

DRUGS (1)
  1. IBUPROFEN [Suspect]
     Indication: ARTHRALGIA
     Dosage: 600 MG, UNK
     Route: 048

REACTIONS (3)
  - Anuria [Recovered/Resolved with Sequelae]
  - Arrhythmia [Recovered/Resolved with Sequelae]
  - Haematuria [Recovered/Resolved with Sequelae]
